FAERS Safety Report 5505754-9 (Version None)
Quarter: 2007Q4

REPORT INFORMATION
  Report Type: 
  Country: None (occurrence: None)
  Receive Date: 20071102
  Receipt Date: 20071025
  Transmission Date: 20080405
  Serious: Yes (Hospitalization)
  Sender: FDA-Public Use
  Company Number: AU-GENENTECH-250343

PATIENT
  Sex: Female
  Weight: 67 kg

DRUGS (4)
  1. RITUXIMAB [Suspect]
     Indication: B-CELL LYMPHOMA
     Dates: start: 20051114
  2. CYCLOPHOSPHAMIDE [Concomitant]
     Indication: B-CELL LYMPHOMA
     Dates: start: 20051114
  3. VINCRISTINE [Concomitant]
     Indication: B-CELL LYMPHOMA
     Dates: start: 20051114
  4. PREDNISONE [Concomitant]
     Indication: B-CELL LYMPHOMA
     Dates: start: 20051114

REACTIONS (1)
  - RADIUS FRACTURE [None]
